FAERS Safety Report 16776499 (Version 1)
Quarter: 2019Q3

REPORT INFORMATION
  Report Type: Report from Study
  Country: DE (occurrence: DE)
  Receive Date: 20190905
  Receipt Date: 20190905
  Transmission Date: 20191005
  Serious: Yes (Hospitalization)
  Sender: FDA-Public Use
  Company Number: DE-BAUSCH-BL-2019-025388

PATIENT
  Age: 18 Year
  Sex: Female
  Weight: 65 kg

DRUGS (3)
  1. ELIDEL [Suspect]
     Active Substance: PIMECROLIMUS
     Indication: NEURODERMATITIS
     Dosage: DURATION: 1 MONTH 24 DAYS
     Route: 061
     Dates: start: 20040331, end: 20040524
  2. AERIUS [Concomitant]
     Indication: PRODUCT USED FOR UNKNOWN INDICATION
     Dates: start: 20040331
  3. ELIDEL [Suspect]
     Active Substance: PIMECROLIMUS
     Dosage: DURATION: 1 MONTH 25 DAYS
     Route: 061
     Dates: start: 20040401, end: 20040525

REACTIONS (1)
  - Eczema herpeticum [Recovered/Resolved]

NARRATIVE: CASE EVENT DATE: 20040525
